FAERS Safety Report 19286921 (Version 1)
Quarter: 2021Q2

REPORT INFORMATION
  Report Type: Spontaneous
  Country: US (occurrence: US)
  Receive Date: 20210522
  Receipt Date: 20210522
  Transmission Date: 20210717
  Serious: Yes (Hospitalization, Other)
  Sender: FDA-Public Use
  Company Number: US-EPICPHARMA-US-2021EPCLIT00537

PATIENT
  Age: 15 Year

DRUGS (17)
  1. D 50 (GLUCOSE 50%) [Suspect]
     Active Substance: DEXTROSE
     Indication: HYPOGLYCAEMIA
  2. HYDROXOCOBALAMIN [Interacting]
     Active Substance: HYDROXOCOBALAMIN
     Route: 042
  3. BENZONATATE. [Suspect]
     Active Substance: BENZONATATE
     Indication: PRODUCT USED FOR UNKNOWN INDICATION
     Route: 048
  4. CALCIUM CHLORIDE. [Interacting]
     Active Substance: CALCIUM CHLORIDE
     Indication: PRODUCT USED FOR UNKNOWN INDICATION
     Route: 065
  5. AMLODIPINE BESYLATE. [Suspect]
     Active Substance: AMLODIPINE BESYLATE
     Indication: PRODUCT USED FOR UNKNOWN INDICATION
     Route: 048
  6. NORMAL SALINE [Interacting]
     Active Substance: SODIUM CHLORIDE
     Route: 065
  7. METHYLENE BLUE. [Interacting]
     Active Substance: METHYLENE BLUE
     Route: 042
  8. GLUCAGON. [Interacting]
     Active Substance: GLUCAGON
     Indication: BLOOD GLUCOSE ABNORMAL
     Route: 065
  9. NOREPINEPHRINE. [Interacting]
     Active Substance: NOREPINEPHRINE
     Route: 065
  10. HYDROCORTISONE. [Interacting]
     Active Substance: HYDROCORTISONE
     Route: 042
  11. TRAZODONE [Suspect]
     Active Substance: TRAZODONE HYDROCHLORIDE
     Indication: PRODUCT USED FOR UNKNOWN INDICATION
     Route: 048
  12. INSULIN [Interacting]
     Active Substance: INSULIN NOS
     Dosage: MAXIMUM DOSE OF 9UNITS/KG/HR
     Route: 042
  13. DEXTROSE. [Interacting]
     Active Substance: DEXTROSE
     Indication: BLOOD GLUCOSE ABNORMAL
     Dosage: D?50%
     Route: 065
  14. ALLOPURINOL. [Suspect]
     Active Substance: ALLOPURINOL
     Indication: PRODUCT USED FOR UNKNOWN INDICATION
     Route: 048
  15. VASOPRESSIN. [Interacting]
     Active Substance: VASOPRESSIN
     Dosage: 6 MILLIUNITS/KG/MIN
     Route: 065
  16. EFFEXOR [Suspect]
     Active Substance: VENLAFAXINE HYDROCHLORIDE
     Indication: PRODUCT USED FOR UNKNOWN INDICATION
     Route: 048
  17. DOBUTAMINE [Interacting]
     Active Substance: DOBUTAMINE HYDROCHLORIDE
     Dosage: 10MCG/KG/MIN
     Route: 065

REACTIONS (7)
  - Toxicity to various agents [Unknown]
  - Metabolic acidosis [Recovering/Resolving]
  - Hypoglycaemia [Unknown]
  - Acute respiratory distress syndrome [Unknown]
  - Acute kidney injury [Unknown]
  - Overdose [Unknown]
  - Vasoplegia syndrome [Recovering/Resolving]
